FAERS Safety Report 17349780 (Version 3)
Quarter: 2020Q1

REPORT INFORMATION
  Report Type: Report from Study
  Country: UG (occurrence: UG)
  Receive Date: 20200130
  Receipt Date: 20200317
  Transmission Date: 20200409
  Serious: Yes (Other)
  Sender: FDA-Public Use
  Company Number: UG-VIIV HEALTHCARE LIMITED-UG2019GSK177541

PATIENT
  Age: 17 Year
  Sex: Female
  Weight: 51.8 kg

DRUGS (14)
  1. DOLUTEGRAVIR [Suspect]
     Active Substance: DOLUTEGRAVIR
     Indication: HIV INFECTION
     Dosage: UNK
     Route: 048
     Dates: start: 20171120, end: 20180130
  2. DOLUTEGRAVIR [Suspect]
     Active Substance: DOLUTEGRAVIR
     Dosage: UNK
     Route: 048
     Dates: start: 20180209, end: 20190823
  3. PARACETAMOL [Concomitant]
     Active Substance: ACETAMINOPHEN
     Dosage: UNK
     Dates: start: 20180607, end: 20180608
  4. TENOFOVIR [Concomitant]
     Active Substance: TENOFOVIR
     Dosage: UNK
     Route: 048
     Dates: start: 20190910
  5. COARTEM [Concomitant]
     Active Substance: ARTEMETHER\LUMEFANTRINE
     Dosage: UNK
     Dates: start: 20180607, end: 20180610
  6. ARTESUNATE [Concomitant]
     Active Substance: ARTESUNATE
     Dosage: UNK
     Dates: start: 20180607, end: 20180608
  7. TENOFOVIR [Concomitant]
     Active Substance: TENOFOVIR
     Indication: HIV INFECTION
     Dosage: UNK
     Route: 048
     Dates: start: 20171120, end: 20180130
  8. LAMIVUDINE. [Concomitant]
     Active Substance: LAMIVUDINE
     Indication: HIV INFECTION
     Dosage: UNK
     Route: 048
     Dates: start: 20171120, end: 20180130
  9. DOLUTEGRAVIR [Suspect]
     Active Substance: DOLUTEGRAVIR
     Dosage: UNK
     Route: 048
     Dates: start: 20190910
  10. LAMIVUDINE. [Concomitant]
     Active Substance: LAMIVUDINE
     Dosage: UNK
     Route: 048
     Dates: start: 20190910
  11. PROGESTERONE IMPLANT [Concomitant]
     Dosage: UNK
     Dates: start: 20171117
  12. COTRIMOXAZOLE [Concomitant]
     Active Substance: SULFAMETHOXAZOLE\TRIMETHOPRIM
     Dosage: UNK
     Dates: start: 20171117
  13. TENOFOVIR [Concomitant]
     Active Substance: TENOFOVIR
     Dosage: UNK
     Route: 048
     Dates: start: 20180209, end: 20190823
  14. LAMIVUDINE. [Concomitant]
     Active Substance: LAMIVUDINE
     Dosage: UNK
     Route: 048
     Dates: start: 20180209, end: 20190823

REACTIONS (1)
  - Major depression [Recovering/Resolving]

NARRATIVE: CASE EVENT DATE: 20180615
